FAERS Safety Report 10994186 (Version 4)
Quarter: 2015Q3

REPORT INFORMATION
  Report Type: Spontaneous
  Country: US (occurrence: US)
  Receive Date: 20150407
  Receipt Date: 20150717
  Transmission Date: 20151125
  Serious: Yes (Other)
  Sender: FDA-Public Use
  Company Number: US-BAYER-2015-087004

PATIENT
  Age: 63 Year
  Sex: Male

DRUGS (2)
  1. XOFIGO [Suspect]
     Active Substance: RADIUM RA-223 DICHLORIDE
     Indication: PROSTATE CANCER STAGE IV
     Dosage: 50 KBQ PER KG BODY WEIGHT; EVERY MONTH FOR 6 MONTHS
     Route: 042
     Dates: start: 20150225, end: 20150225
  2. XOFIGO [Suspect]
     Active Substance: RADIUM RA-223 DICHLORIDE
     Indication: METASTASES TO BONE

REACTIONS (8)
  - Extradural abscess [None]
  - Adverse event [None]
  - Urinary tract infection [None]
  - Haemoglobin decreased [None]
  - Urine odour abnormal [None]
  - Psoas abscess [None]
  - Fall [None]
  - Back pain [None]

NARRATIVE: CASE EVENT DATE: 20150327
